FAERS Safety Report 18679608 (Version 1)
Quarter: 2020Q4

REPORT INFORMATION
  Report Type: Report from Study
  Country: US (occurrence: US)
  Receive Date: 20201229
  Receipt Date: 20201229
  Transmission Date: 20210114
  Serious: No
  Sender: FDA-Public Use
  Company Number: US-CLOVIS ONCOLOGY-CLO-2020-000514

PATIENT
  Sex: Female

DRUGS (7)
  1. RUBRACA [Suspect]
     Active Substance: RUCAPARIB CAMSYLATE
     Dosage: 600 MG, BID
     Route: 048
     Dates: end: 20200518
  2. RUBRACA [Suspect]
     Active Substance: RUCAPARIB CAMSYLATE
     Dosage: 600 MG, BID
     Route: 048
  3. RUBRACA [Suspect]
     Active Substance: RUCAPARIB CAMSYLATE
     Dosage: 600 MG BID FOR 1 DAY
     Route: 048
  4. RUBRACA [Suspect]
     Active Substance: RUCAPARIB CAMSYLATE
     Indication: OVARIAN CANCER
     Dosage: 600 MG, BID
     Route: 048
     Dates: end: 202002
  5. RUBRACA [Suspect]
     Active Substance: RUCAPARIB CAMSYLATE
     Dosage: 300 MG BID FOR 3 DAYS
     Route: 048
  6. RUBRACA [Suspect]
     Active Substance: RUCAPARIB CAMSYLATE
     Dosage: 200 MG, TID
     Route: 048
  7. RUBRACA [Suspect]
     Active Substance: RUCAPARIB CAMSYLATE
     Dosage: 200 MG, QD
     Route: 048

REACTIONS (21)
  - Swollen tongue [Recovering/Resolving]
  - Dysphonia [Recovering/Resolving]
  - Toothache [Recovered/Resolved]
  - Oral discomfort [Recovering/Resolving]
  - Dyspepsia [Unknown]
  - Nail bed disorder [Recovered/Resolved]
  - Constipation [Recovering/Resolving]
  - Oral pain [Not Recovered/Not Resolved]
  - Skin discolouration [Recovered/Resolved]
  - Dry skin [Recovered/Resolved]
  - Abdominal distension [Recovered/Resolved]
  - Abdominal discomfort [Recovered/Resolved]
  - Muscle tightness [Recovered/Resolved]
  - Nail discolouration [Recovered/Resolved]
  - Taste disorder [Recovering/Resolving]
  - Tongue discomfort [Not Recovered/Not Resolved]
  - Tongue discolouration [Recovering/Resolving]
  - Onychoclasis [Recovered/Resolved]
  - Headache [Recovered/Resolved]
  - Rash pruritic [Recovering/Resolving]
  - Inappropriate schedule of product administration [Unknown]
